FAERS Safety Report 17496073 (Version 1)
Quarter: 2020Q1

REPORT INFORMATION
  Report Type: Spontaneous
  Country: US (occurrence: US)
  Receive Date: 20200304
  Receipt Date: 20200304
  Transmission Date: 20200409
  Serious: No
  Sender: FDA-Public Use
  Company Number: None

PATIENT
  Age: 64 Year
  Sex: Female
  Weight: 62.55 kg

DRUGS (2)
  1. VITAMIN D3 [Concomitant]
     Active Substance: CHOLECALCIFEROL
  2. LISINOPRIL  10 MG [Suspect]
     Active Substance: LISINOPRIL

REACTIONS (5)
  - Blood pressure inadequately controlled [None]
  - Drug ineffective [None]
  - Drug intolerance [None]
  - Therapy cessation [None]
  - Product substitution issue [None]

NARRATIVE: CASE EVENT DATE: 20190820
